FAERS Safety Report 21683933 (Version 1)
Quarter: 2022Q4

REPORT INFORMATION
  Report Type: Spontaneous
  Country: US (occurrence: None)
  Receive Date: 20221204
  Receipt Date: 20221204
  Transmission Date: 20230113
  Serious: Yes (Disabling)
  Sender: FDA-Public Use
  Company Number: None

PATIENT
  Age: 33 Year
  Sex: Male
  Weight: 69.75 kg

DRUGS (5)
  1. FINASTERIDE [Suspect]
     Active Substance: FINASTERIDE
     Indication: Androgenetic alopecia
     Dosage: OTHER QUANTITY : 1 TABLET(S);?FREQUENCY : DAILY;?
     Route: 048
     Dates: start: 20201011, end: 20210911
  2. LOSARTAN [Concomitant]
     Active Substance: LOSARTAN
  3. CARIPRAZINE [Concomitant]
     Active Substance: CARIPRAZINE
  4. VITAMINS [Concomitant]
     Active Substance: VITAMINS
  5. FISH OIL [Concomitant]
     Active Substance: FISH OIL

REACTIONS (12)
  - Nervous system disorder [None]
  - Depression [None]
  - Apathy [None]
  - Suicidal ideation [None]
  - Disturbance in attention [None]
  - Memory impairment [None]
  - Amnesia [None]
  - Erectile dysfunction [None]
  - Ejaculation delayed [None]
  - Anhedonia [None]
  - Loss of libido [None]
  - Male genital atrophy [None]

NARRATIVE: CASE EVENT DATE: 20220911
